FAERS Safety Report 4394480-8 (Version None)
Quarter: 2004Q3

REPORT INFORMATION
  Report Type: 
  Country: None (occurrence: None)
  Receive Date: 20040709
  Receipt Date: 20040709
  Transmission Date: 20050211
  Serious: No
  Sender: FDA-Public Use
  Company Number: None

PATIENT
  Sex: Male
  Weight: 54.7 kg

DRUGS (7)
  1. OXACILLIN [Suspect]
     Indication: STAPHYLOCOCCAL INFECTION
     Dosage: 2 GM  EVERY 6 HO IV
     Route: 042
     Dates: start: 20040608, end: 20040624
  2. OXACILLIN [Suspect]
  3. COLACE [Concomitant]
  4. DURAGESIC [Concomitant]
  5. LACTULOSE [Concomitant]
  6. RIFAMPIN [Concomitant]
  7. ROXICODONE [Concomitant]

REACTIONS (1)
  - RASH GENERALISED [None]
